FAERS Safety Report 5761533-9 (Version None)
Quarter: 2008Q2

REPORT INFORMATION
  Report Type: 
  Country: None (occurrence: None)
  Receive Date: 20080606
  Receipt Date: 20080531
  Transmission Date: 20081010
  Serious: Yes (Hospitalization)
  Sender: FDA-Public Use
  Company Number: US-AMGEN-QUU283649

PATIENT
  Sex: Female

DRUGS (7)
  1. ARANESP [Suspect]
     Indication: RENAL FAILURE CHRONIC
     Dates: start: 20071001
  2. IRON [Concomitant]
  3. WARFARIN SODIUM [Concomitant]
  4. FUROSEMIDE [Concomitant]
  5. LEVOTHYROXINE SODIUM [Concomitant]
  6. POTASSIUM CHLORIDE [Concomitant]
  7. ASPIRIN [Concomitant]

REACTIONS (6)
  - ANAEMIA [None]
  - INJECTION SITE BRUISING [None]
  - INJECTION SITE PAIN [None]
  - SWELLING [None]
  - TRICUSPID VALVE REPLACEMENT [None]
  - WEIGHT DECREASED [None]
